FAERS Safety Report 4336821-3 (Version None)
Quarter: 2004Q2

REPORT INFORMATION
  Report Type: 
  Country: None (occurrence: None)
  Receive Date: 20040408
  Receipt Date: 20040323
  Transmission Date: 20050107
  Serious: Yes (Hospitalization)
  Sender: FDA-Public Use
  Company Number: 191034

PATIENT
  Age: 45 Year
  Sex: Female
  Weight: 56.6996 kg

DRUGS (6)
  1. AVONEX [Suspect]
     Indication: MULTIPLE SCLEROSIS
     Dosage: 30 MCG QW IM
     Route: 030
     Dates: start: 20010101, end: 20020101
  2. SYNTHROID [Concomitant]
  3. XANAX [Concomitant]
  4. MIDRIN [Concomitant]
  5. DARVOCET-N 100 [Concomitant]
  6. TEGRETOL [Concomitant]

REACTIONS (10)
  - ANAEMIA [None]
  - CHILLS [None]
  - CONVULSION [None]
  - FATIGUE [None]
  - FEELING COLD [None]
  - HEADACHE [None]
  - INFLUENZA LIKE ILLNESS [None]
  - OVARIAN CYST [None]
  - TREMOR [None]
  - WEIGHT DECREASED [None]
